FAERS Safety Report 8699270 (Version 2)
Quarter: 2013Q2

REPORT INFORMATION
  Report Type: Spontaneous
  Country: US (occurrence: US)
  Receive Date: 20120802
  Receipt Date: 20130514
  Transmission Date: 20140414
  Serious: Yes (Hospitalization, Other)
  Sender: FDA-Public Use
  Company Number: US-ROCHE-784572

PATIENT
  Sex: Male
  Weight: 74.91 kg

DRUGS (2)
  1. ACCUTANE [Suspect]
     Indication: ACNE
     Route: 065
     Dates: start: 198209, end: 198302
  2. ACCUTANE [Suspect]
     Route: 065
     Dates: start: 198402, end: 198406

REACTIONS (6)
  - Crohn^s disease [Unknown]
  - Major depression [Unknown]
  - Inflammatory bowel disease [Unknown]
  - Emotional distress [Unknown]
  - Diverticulitis [Unknown]
  - Large intestine polyp [Unknown]
